FAERS Safety Report 5243418-X (Version None)
Quarter: 2007Q1

REPORT INFORMATION
  Report Type: 
  Country: None (occurrence: None)
  Receive Date: 20070214
  Receipt Date: 20070201
  Transmission Date: 20070707
  Serious: Yes (Hospitalization)
  Sender: FDA-Public Use
  Company Number: 02100-EUR-07-0005

PATIENT
  Age: 65 Year
  Sex: Female

DRUGS (6)
  1. CILOSTAZOL [Suspect]
     Indication: ARTERIAL OCCLUSIVE DISEASE
     Dosage: NI ORAL
     Route: 048
  2. CALCIUM CHANNEL BLOCKERS [Concomitant]
  3. BETA BLOCKING AGENT [Concomitant]
  4. AMLODIPINE [Concomitant]
  5. DIURETICS [Concomitant]
  6. ACE-INHIBITOR-NOS [Concomitant]

REACTIONS (4)
  - DIARRHOEA [None]
  - FACE OEDEMA [None]
  - FLUSHING [None]
  - TACHYCARDIA [None]
